FAERS Safety Report 11603316 (Version 2)
Quarter: 2015Q4

REPORT INFORMATION
  Report Type: Spontaneous
  Country: ES (occurrence: ES)
  Receive Date: 20151007
  Receipt Date: 20151012
  Transmission Date: 20160304
  Serious: Yes (Other)
  Sender: FDA-Public Use
  Company Number: ES-ROCHE-1642168

PATIENT
  Sex: Female

DRUGS (4)
  1. TAMOXIFEN [Concomitant]
     Active Substance: TAMOXIFEN
  2. HERCEPTIN [Suspect]
     Active Substance: TRASTUZUMAB
     Indication: HER-2 POSITIVE BREAST CANCER
     Dosage: ON /SEP/2015 LAST DOSE WAS GIVEN.
     Route: 065
     Dates: start: 2003
  3. ZOMETA [Suspect]
     Active Substance: ZOLEDRONIC ACID
     Indication: PRODUCT USED FOR UNKNOWN INDICATION
     Route: 065
  4. LETROZOLE. [Concomitant]
     Active Substance: LETROZOLE

REACTIONS (5)
  - Bone disorder [Unknown]
  - Metastases to central nervous system [Unknown]
  - Osteomyelitis [Recovered/Resolved]
  - Metastases to spine [Unknown]
  - Bone decalcification [Unknown]

NARRATIVE: CASE EVENT DATE: 2006
